FAERS Safety Report 5097864-8 (Version None)
Quarter: 2006Q3

REPORT INFORMATION
  Report Type: 
  Country: None (occurrence: None)
  Receive Date: 20060905
  Receipt Date: 20060816
  Transmission Date: 20061208
  Serious: Yes (Other)
  Sender: FDA-Public Use
  Company Number: ENTC2006-0192

PATIENT
  Age: 80 Year
  Sex: 0

DRUGS (8)
  1. STALEVO 100 [Suspect]
     Dosage: 50 MG QD ORAL
     Route: 048
  2. REQUIP [Concomitant]
  3. BETASERC [Concomitant]
  4. ZESTORETIC [Concomitant]
  5. LANOXIN [Concomitant]
  6. ZOCOR [Concomitant]
  7. AMLOR [Concomitant]
  8. ROHYPNOL [Concomitant]

REACTIONS (6)
  - ABDOMINAL PAIN [None]
  - COUGH [None]
  - EMOTIONAL DISORDER [None]
  - HALLUCINATION [None]
  - INCREASED UPPER AIRWAY SECRETION [None]
  - NAUSEA [None]
